FAERS Safety Report 9210774 (Version 1)
Quarter: 2013Q2

REPORT INFORMATION
  Report Type: Spontaneous
  Country: JP (occurrence: JP)
  Receive Date: 20130404
  Receipt Date: 20130404
  Transmission Date: 20140414
  Serious: Yes (Hospitalization)
  Sender: FDA-Public Use
  Company Number: JP-GLAXOSMITHKLINE-B0879331A

PATIENT
  Age: 45 Year
  Sex: Female

DRUGS (3)
  1. PAXIL [Suspect]
     Indication: ANXIETY
     Dosage: 12.5MG TWICE PER DAY
     Route: 048
  2. DEPAS [Concomitant]
     Indication: ANXIETY
     Route: 048
  3. MYSLEE [Concomitant]
     Indication: ANXIETY
     Route: 048

REACTIONS (10)
  - Convulsion [Recovering/Resolving]
  - Convulsion [Unknown]
  - Circulatory collapse [Unknown]
  - Lactic acidosis [Unknown]
  - Epilepsy [Unknown]
  - Visual impairment [Unknown]
  - Dizziness [Unknown]
  - Facial spasm [Unknown]
  - Tachycardia [Unknown]
  - Overdose [Unknown]
